FAERS Safety Report 16730334 (Version 1)
Quarter: 2019Q3

REPORT INFORMATION
  Report Type: Spontaneous
  Country: US (occurrence: US)
  Receive Date: 20190822
  Receipt Date: 20190822
  Transmission Date: 20191005
  Serious: No
  Sender: FDA-Public Use
  Company Number: US-AMGEN-USASP2019132478

PATIENT
  Age: 91 Year
  Sex: Male

DRUGS (2)
  1. PRAVASTATIN. [Concomitant]
     Active Substance: PRAVASTATIN
     Dosage: UNK
  2. PROLIA [Suspect]
     Active Substance: DENOSUMAB
     Indication: PROSTATE CANCER
     Dosage: 60 MILLIGRAM, Q6MO
     Route: 065
     Dates: start: 201703

REACTIONS (1)
  - Tooth loss [Unknown]

NARRATIVE: CASE EVENT DATE: 201703
